FAERS Safety Report 5853523-2 (Version None)
Quarter: 2008Q3

REPORT INFORMATION
  Report Type: 
  Country: None (occurrence: None)
  Receive Date: 20080822
  Receipt Date: 20080815
  Transmission Date: 20090109
  Serious: Yes (Other)
  Sender: FDA-Public Use
  Company Number: US-CELGENEUS-163-21880-08021758

PATIENT
  Sex: Male

DRUGS (8)
  1. REVLIMID [Suspect]
     Indication: MULTIPLE MYELOMA
     Route: 048
     Dates: start: 20071031
  2. REVLIMID [Suspect]
     Route: 048
     Dates: start: 20071004, end: 20070101
  3. REVLIMID [Suspect]
     Route: 048
     Dates: start: 20070717, end: 20070101
  4. REVLIMID [Suspect]
     Route: 048
     Dates: start: 20070108, end: 20070101
  5. REVLIMID [Suspect]
     Route: 048
     Dates: start: 20070102
  6. WARFARIN SODIUM [Concomitant]
     Indication: DRUG USE FOR UNKNOWN INDICATION
     Route: 065
     Dates: start: 20071001
  7. ASPIRIN [Concomitant]
     Indication: DRUG USE FOR UNKNOWN INDICATION
     Route: 065
     Dates: start: 20071001
  8. DECADRON SRC [Concomitant]
     Indication: DRUG USE FOR UNKNOWN INDICATION
     Route: 065

REACTIONS (2)
  - NEUTROPENIA [None]
  - NON-HODGKIN'S LYMPHOMA [None]
